FAERS Safety Report 18642443 (Version 1)
Quarter: 2020Q4

REPORT INFORMATION
  Report Type: Spontaneous
  Country: EG (occurrence: EG)
  Receive Date: 20201221
  Receipt Date: 20201221
  Transmission Date: 20210114
  Serious: Yes (Death, Hospitalization)
  Sender: FDA-Public Use
  Company Number: NVSC2020EG336480

PATIENT
  Sex: Male

DRUGS (1)
  1. AFINITOR [Suspect]
     Active Substance: EVEROLIMUS
     Indication: RENAL CANCER
     Dosage: (2 TABLET DAILY AND THEN ONE TAB DAILY AND THEN HE WAS  TAKING ONE TAB DAY BY DAY)
     Route: 065
     Dates: start: 202002, end: 202007

REACTIONS (4)
  - Rash [Not Recovered/Not Resolved]
  - Immune system disorder [Unknown]
  - Death [Fatal]
  - Skin burning sensation [Not Recovered/Not Resolved]

NARRATIVE: CASE EVENT DATE: 20200828
